FAERS Safety Report 4615032-8 (Version None)
Quarter: 2005Q1

REPORT INFORMATION
  Report Type: 
  Country: None (occurrence: None)
  Receive Date: 20050318
  Receipt Date: 20050318
  Transmission Date: 20050727
  Serious: Yes (Hospitalization, Disabling)
  Sender: FDA-Public Use
  Company Number: None

PATIENT
  Age: 60 Year
  Sex: Female
  Weight: 50.8029 kg

DRUGS (1)
  1. VIOXX [Suspect]
     Indication: OSTEOARTHRITIS
     Dosage: 25 MG 1 DAILY

REACTIONS (7)
  - ANKLE FRACTURE [None]
  - CEREBROVASCULAR ACCIDENT [None]
  - FALL [None]
  - FOOT FRACTURE [None]
  - LOWER LIMB FRACTURE [None]
  - PULSE ABNORMAL [None]
  - VASCULAR OCCLUSION [None]
